FAERS Safety Report 12478934 (Version 1)
Quarter: 2016Q2

REPORT INFORMATION
  Report Type: Spontaneous
  Country: US (occurrence: US)
  Receive Date: 20160620
  Receipt Date: 20160620
  Transmission Date: 20160815
  Serious: Yes (Hospitalization, Other)
  Sender: FDA-Public Use
  Company Number: US-AMGEN-USASP2016078096

PATIENT
  Age: 63 Year
  Sex: Female

DRUGS (1)
  1. ENBREL [Suspect]
     Active Substance: ETANERCEPT
     Indication: RHEUMATOID ARTHRITIS
     Dosage: 50 MG, QWK
     Route: 065

REACTIONS (9)
  - Road traffic accident [Unknown]
  - Dizziness [Unknown]
  - Nervous system disorder [Unknown]
  - Eye disorder [Unknown]
  - Cerebrovascular accident [Unknown]
  - Cerebral haematoma [Unknown]
  - Drug dose omission [Unknown]
  - Amnesia [Unknown]
  - Muscle spasms [Unknown]

NARRATIVE: CASE EVENT DATE: 2015
